FAERS Safety Report 24537986 (Version 1)
Quarter: 2024Q4

REPORT INFORMATION
  Report Type: Spontaneous
  Country: IT (occurrence: IT)
  Receive Date: 20241023
  Receipt Date: 20241023
  Transmission Date: 20250115
  Serious: Yes (Other)
  Sender: SANDOZ
  Company Number: IT-NOVPHSZ-PHHY2019IT116752

PATIENT
  Weight: 1.67 kg

DRUGS (5)
  1. BECLOMETHASONE DIPROPIONATE [Suspect]
     Active Substance: BECLOMETHASONE DIPROPIONATE
     Dosage: UNK
     Route: 064
  2. BECLOMETHASONE DIPROPIONATE [Suspect]
     Active Substance: BECLOMETHASONE DIPROPIONATE
     Indication: Foetal exposure during pregnancy
     Route: 064
  3. INFLIXIMAB [Suspect]
     Active Substance: INFLIXIMAB
     Indication: Foetal exposure during pregnancy
     Route: 064
  4. MESALAMINE [Suspect]
     Active Substance: MESALAMINE
     Indication: Foetal exposure during pregnancy
     Route: 064
  5. RIFAXIMIN [Suspect]
     Active Substance: RIFAXIMIN
     Indication: Foetal exposure during pregnancy
     Route: 064

REACTIONS (2)
  - Low birth weight baby [Unknown]
  - Foetal exposure during pregnancy [Unknown]
